FAERS Safety Report 25426869 (Version 3)
Quarter: 2025Q3

REPORT INFORMATION
  Report Type: Spontaneous
  Country: JP (occurrence: JP)
  Receive Date: 20250612
  Receipt Date: 20250922
  Transmission Date: 20251021
  Serious: Yes (Hospitalization)
  Sender: SUNOVION
  Company Number: JP-SMPA-2025SPA007162

PATIENT
  Age: 41 Year
  Sex: Female

DRUGS (1)
  1. RELUGOLIX [Suspect]
     Active Substance: RELUGOLIX
     Indication: Uterine leiomyoma
     Route: 048
     Dates: start: 20250430, end: 20250519

REACTIONS (1)
  - Degeneration of uterine leiomyoma [Recovered/Resolved]

NARRATIVE: CASE EVENT DATE: 20250519
